FAERS Safety Report 6432910-8 (Version None)
Quarter: 2009Q4

REPORT INFORMATION
  Report Type: 
  Country: None (occurrence: None)
  Receive Date: 20091109
  Receipt Date: 20091028
  Transmission Date: 20100525
  Serious: Yes (Disabling)
  Sender: FDA-Public Use
  Company Number: JP-MERCK-0910USA01181

PATIENT
  Age: 66 Year
  Sex: Male
  Weight: 61 kg

DRUGS (6)
  1. CLINORIL [Suspect]
     Indication: INTERVERTEBRAL DISC PROTRUSION
     Route: 048
     Dates: start: 20080819, end: 20080907
  2. PREDONINE [Concomitant]
     Indication: PAIN
     Route: 048
     Dates: start: 20080819, end: 20080907
  3. PREDONINE [Concomitant]
     Indication: HYPOAESTHESIA
     Route: 048
     Dates: start: 20080819, end: 20080907
  4. ISALON [Concomitant]
     Indication: PAIN
     Route: 048
     Dates: start: 20080819, end: 20080907
  5. ISALON [Concomitant]
     Indication: HYPOAESTHESIA
     Route: 048
     Dates: start: 20080819, end: 20080907
  6. NEDORIL [Concomitant]
     Indication: ONYCHOMYCOSIS
     Route: 048
     Dates: start: 20080701, end: 20080907

REACTIONS (1)
  - STEVENS-JOHNSON SYNDROME [None]
